FAERS Safety Report 16450912 (Version 4)
Quarter: 2019Q3

REPORT INFORMATION
  Report Type: Spontaneous
  Country: US (occurrence: US)
  Receive Date: 20190619
  Receipt Date: 20190807
  Transmission Date: 20191004
  Serious: Yes (Life-Threatening, Other)
  Sender: FDA-Public Use
  Company Number: US-009507513-1906USA005799

PATIENT
  Age: 13 Year
  Sex: Female
  Weight: 56.69 kg

DRUGS (4)
  1. NEXPLANON [Suspect]
     Active Substance: ETONOGESTREL
     Indication: CONTRACEPTION
     Dosage: 1 IMPLANT IN LEFT ARM FOR THREE YEARS
     Route: 059
     Dates: start: 20190222, end: 20190423
  2. ARIPIPRAZOLE. [Concomitant]
     Active Substance: ARIPIPRAZOLE
     Indication: BIPOLAR DISORDER
     Dosage: 2 MILLIGRAM, QD
     Route: 048
     Dates: start: 20190430
  3. NEXPLANON [Suspect]
     Active Substance: ETONOGESTREL
     Indication: DYSMENORRHOEA
     Dosage: 1 IMPLANT
     Route: 059
     Dates: start: 201601, end: 20190222
  4. TRILEPTAL [Concomitant]
     Active Substance: OXCARBAZEPINE

REACTIONS (7)
  - Staphylococcal infection [Recovered/Resolved]
  - Implant site abscess [Recovered/Resolved]
  - Influenza [Unknown]
  - Implant site infection [Recovered/Resolved]
  - Implant site erythema [Recovered/Resolved]
  - Product use in unapproved indication [Unknown]
  - Implant site pruritus [Recovered/Resolved]

NARRATIVE: CASE EVENT DATE: 201601
